FAERS Safety Report 5361561-1 (Version None)
Quarter: 2007Q2

REPORT INFORMATION
  Report Type: 
  Country: None (occurrence: None)
  Receive Date: 20070619
  Receipt Date: 20070608
  Transmission Date: 20071010
  Serious: Yes (Hospitalization, Other)
  Sender: FDA-Public Use
  Company Number: PHHO2006AR10446

PATIENT
  Age: 27 Year
  Sex: Male
  Weight: 62.7 kg

DRUGS (7)
  1. CERTICAN [Suspect]
     Indication: RENAL TRANSPLANT
     Dosage: 1.44 G/DAY
     Route: 048
     Dates: start: 20060615, end: 20060726
  2. CERTICAN [Suspect]
     Dosage: 1.44 G/DAY
     Route: 048
     Dates: start: 20060727, end: 20060728
  3. CERTICAN [Suspect]
     Dosage: 1.44 G/DAY
     Route: 048
     Dates: start: 20060729
  4. CERTICAN [Suspect]
     Dosage: 720 MG DAILY
     Route: 048
     Dates: end: 20061024
  5. NEORAL [Suspect]
     Indication: RENAL TRANSPLANT
     Route: 048
     Dates: end: 20060726
  6. NEORAL [Suspect]
     Route: 048
     Dates: start: 19090627, end: 20060728
  7. NEORAL [Suspect]
     Dosage: 50 MG DAILY
     Route: 048
     Dates: start: 20060729, end: 20061024

REACTIONS (19)
  - ABDOMINAL HAEMATOMA [None]
  - ABDOMINAL PAIN [None]
  - COMPLICATIONS OF TRANSPLANT SURGERY [None]
  - COMPLICATIONS OF TRANSPLANTED KIDNEY [None]
  - DIARRHOEA [None]
  - HAEMATOMA EVACUATION [None]
  - HAEMODYNAMIC INSTABILITY [None]
  - HYPERPLASIA [None]
  - HYPOTENSION [None]
  - LEUKOPENIA [None]
  - NEPHROPATHY TOXIC [None]
  - NEPHROSCLEROSIS [None]
  - PERINEPHRIC COLLECTION [None]
  - PYREXIA [None]
  - RENAL ATROPHY [None]
  - RENAL TUBULAR NECROSIS [None]
  - SURGERY [None]
  - URETERAL DISORDER [None]
  - URETERIC REPAIR [None]
